FAERS Safety Report 15628281 (Version 1)
Quarter: 2018Q4

REPORT INFORMATION
  Report Type: Report from Study
  Country: US (occurrence: US)
  Receive Date: 20181116
  Receipt Date: 20181116
  Transmission Date: 20190205
  Serious: No
  Sender: FDA-Public Use
  Company Number: PHEH2018US048303

PATIENT
  Sex: Female
  Weight: 56.7 kg

DRUGS (1)
  1. GLATOPA [Suspect]
     Active Substance: GLATIRAMER ACETATE
     Indication: MULTIPLE SCLEROSIS
     Dosage: 3 DF, QW (ROTATING SITES
     Route: 058
     Dates: start: 20181101

REACTIONS (1)
  - Muscle spasms [Recovering/Resolving]
